FAERS Safety Report 8853189 (Version 1)
Quarter: 2012Q4

REPORT INFORMATION
  Report Type: Report from Study
  Country: US (occurrence: US)
  Receive Date: 20121022
  Receipt Date: 20121022
  Transmission Date: 20130627
  Serious: Yes (Hospitalization, Other)
  Sender: FDA-Public Use
  Company Number: US-ROCHE-1142785

PATIENT
  Age: 68 Year
  Sex: Male
  Weight: 71 kg

DRUGS (5)
  1. ERLOTINIB [Suspect]
     Indication: ADENOCARCINOMA PANCREAS
     Route: 048
     Dates: start: 20120829, end: 20120927
  2. VISMODEGIB [Suspect]
     Indication: ADENOCARCINOMA PANCREAS
     Route: 048
     Dates: start: 20120829, end: 20120927
  3. LOVENOX [Concomitant]
  4. MIRALAX [Concomitant]
  5. PANCRELIPASE [Concomitant]

REACTIONS (9)
  - Embolism [Not Recovered/Not Resolved]
  - Back pain [Not Recovered/Not Resolved]
  - Pain in extremity [Not Recovered/Not Resolved]
  - Incorrect dose administered [Unknown]
  - Lymphocyte count decreased [Recovered/Resolved]
  - Lumbar vertebral fracture [Unknown]
  - Malignant neoplasm progression [Unknown]
  - Pneumatosis intestinalis [Recovered/Resolved]
  - Abdominal pain [Recovered/Resolved]
